FAERS Safety Report 5263693-5 (Version None)
Quarter: 2007Q1

REPORT INFORMATION
  Report Type: 
  Country: None (occurrence: None)
  Receive Date: 20070312
  Receipt Date: 20070312
  Transmission Date: 20070707
  Serious: Yes (Life-Threatening, Hospitalization, Other)
  Sender: FDA-Public Use
  Company Number: None

PATIENT
  Age: 50 Year
  Sex: Female
  Weight: 61.2356 kg

DRUGS (2)
  1. ZYPREXA [Suspect]
     Indication: BIPOLAR DISORDER
  2. NEURONTIN [Suspect]
     Indication: SCHIZOPHRENIA

REACTIONS (14)
  - AMNESIA [None]
  - BLINDNESS UNILATERAL [None]
  - CORRECTIVE LENS USER [None]
  - EYE INFECTION [None]
  - FEAR [None]
  - HEAD INJURY [None]
  - LEGAL PROBLEM [None]
  - MEDICATION ERROR [None]
  - NERVOUS SYSTEM DISORDER [None]
  - PHYSICAL ASSAULT [None]
  - REFUSAL OF TREATMENT BY PATIENT [None]
  - TREATMENT NONCOMPLIANCE [None]
  - VISION BLURRED [None]
  - VISUAL DISTURBANCE [None]
